FAERS Safety Report 5268892-4 (Version None)
Quarter: 2007Q1

REPORT INFORMATION
  Report Type: 
  Country: None (occurrence: None)
  Receive Date: 20061213
  Receipt Date: 20030916
  Transmission Date: 20070707
  Serious: Yes (Other)
  Sender: FDA-Public Use
  Company Number: 2003UW07698

PATIENT
  Age: 84 Year
  Sex: Male
  Weight: 66.2252 kg

DRUGS (7)
  1. IRESSA [Suspect]
     Indication: NON-SMALL CELL LUNG CANCER
     Dosage: 250 MG DAILY PO
     Route: 048
     Dates: start: 20021212
  2. DIGOXIN [Concomitant]
  3. ATENOLOL [Concomitant]
  4. AMBIEN [Concomitant]
  5. PROZAC [Concomitant]
  6. CRDIZEM CD [Concomitant]
  7. XANAX [Concomitant]

REACTIONS (1)
  - THERAPEUTIC RESPONSE UNEXPECTED [None]
